FAERS Safety Report 21802435 (Version 2)
Quarter: 2023Q1

REPORT INFORMATION
  Report Type: Spontaneous
  Country: US (occurrence: US)
  Receive Date: 20221231
  Receipt Date: 20230103
  Transmission Date: 20230418
  Serious: Yes (Other)
  Sender: FDA-Public Use
  Company Number: US-HETERO-HET2022US03221

PATIENT
  Age: 36 Year
  Sex: Male
  Weight: 100 kg

DRUGS (7)
  1. OXCARBAZEPINE [Suspect]
     Active Substance: OXCARBAZEPINE
     Indication: Trigeminal neuritis
     Dosage: 150 MG, 12 HOURLY
     Route: 048
  2. VALACYCLOVIR HYDROCHLORIDE [Concomitant]
     Active Substance: VALACYCLOVIR HYDROCHLORIDE
     Indication: Varicella zoster virus infection
     Dosage: 1 GRAM, 8 HOURLY
     Route: 048
  3. GABAPENTIN [Concomitant]
     Active Substance: GABAPENTIN
     Indication: Trigeminal neuritis
     Dosage: 600 MILLIGRAM, 8 HOURLY
     Route: 048
  4. LIDOCAINE VISCOUS [Concomitant]
     Active Substance: LIDOCAINE HYDROCHLORIDE
     Indication: Analgesic therapy
     Dosage: AS NEEDED Q4-6H
     Route: 048
  5. NORTRIPTYLINE [Concomitant]
     Active Substance: NORTRIPTYLINE
     Indication: Trigeminal neuritis
     Dosage: 25 MILLIGRAM, 12 HOURLY
     Route: 048
  6. SERTRALINE [Concomitant]
     Active Substance: SERTRALINE HYDROCHLORIDE
     Indication: Anxiety
     Dosage: 100 MILLIGRAM, QD
     Route: 065
  7. BACLOFEN [Concomitant]
     Active Substance: BACLOFEN
     Indication: Trigeminal neuritis
     Dosage: 10 MILLIGRAM, 8 HOURLY
     Route: 048

REACTIONS (2)
  - Necrosis [Recovered/Resolved with Sequelae]
  - Angioedema [Recovered/Resolved]
